FAERS Safety Report 5995540-8 (Version None)
Quarter: 2008Q4

REPORT INFORMATION
  Report Type: 
  Country: None (occurrence: None)
  Receive Date: 20081212
  Receipt Date: 20081001
  Transmission Date: 20090506
  Serious: No
  Sender: FDA-Public Use
  Company Number: US-ABBOTT-08P-163-0479159-00

PATIENT
  Sex: Male
  Weight: 113.5 kg

DRUGS (7)
  1. HUMIRA [Suspect]
     Indication: PSORIATIC ARTHROPATHY
     Route: 058
     Dates: start: 20080401
  2. HUMIRA [Suspect]
     Indication: RHEUMATOID ARTHRITIS
  3. ESOMEPRAZOLE MAGNESIUM [Concomitant]
     Indication: GASTRIC DISORDER
     Route: 048
     Dates: start: 20060101
  4. DYAZIDE [Concomitant]
     Indication: BLOOD PRESSURE
     Dosage: 37.5/25 MG DAILY
     Route: 048
  5. CELECOXIB [Concomitant]
     Indication: ARTHRITIS
     Route: 048
  6. RANITIDINE [Concomitant]
     Indication: GASTRIC DISORDER
     Route: 048
     Dates: start: 20040101
  7. VICODIN [Concomitant]
     Indication: PAIN
     Route: 048

REACTIONS (2)
  - ACCIDENTAL EXPOSURE [None]
  - PAIN [None]
